FAERS Safety Report 14467693 (Version 1)
Quarter: 2018Q1

REPORT INFORMATION
  Report Type: Spontaneous
  Country: US (occurrence: US)
  Receive Date: 20180131
  Receipt Date: 20180131
  Transmission Date: 20180509
  Serious: Yes (Hospitalization)
  Sender: FDA-Public Use
  Company Number: US-TARO PHARMACEUTICALS USA.,INC-2018SUN00039

PATIENT
  Age: 25 Year
  Sex: Female

DRUGS (1)
  1. WARFARIN [Suspect]
     Active Substance: WARFARIN
     Indication: ANTICOAGULANT THERAPY
     Dosage: 10 MG, DAILY
     Route: 048

REACTIONS (4)
  - Exposure during pregnancy [Unknown]
  - Paraesthesia oral [Unknown]
  - Transient ischaemic attack [Unknown]
  - Hypoaesthesia [Unknown]
